FAERS Safety Report 9255708 (Version 2)
Quarter: 2013Q2

REPORT INFORMATION
  Report Type: Spontaneous
  Country: US (occurrence: US)
  Receive Date: 20130425
  Receipt Date: 20130604
  Transmission Date: 20140414
  Serious: No
  Sender: FDA-Public Use
  Company Number: US-ASTRAZENECA-2013SE25345

PATIENT
  Age: 68 Year
  Sex: Female
  Weight: 59 kg

DRUGS (6)
  1. NEXIUM [Suspect]
     Indication: GASTROOESOPHAGEAL REFLUX DISEASE
     Route: 048
     Dates: start: 2008, end: 2013
  2. SYNTHROID [Concomitant]
  3. LOVAZA [Concomitant]
  4. MULTIVITAMIN [Concomitant]
  5. B6 SUPPLEMENT [Concomitant]
  6. CALCIUM CALTRATE [Concomitant]

REACTIONS (3)
  - Gastrooesophageal reflux disease [Not Recovered/Not Resolved]
  - Intentional drug misuse [Unknown]
  - Drug ineffective [Not Recovered/Not Resolved]
